FAERS Safety Report 5254799-5 (Version None)
Quarter: 2007Q1

REPORT INFORMATION
  Report Type: 
  Country: None (occurrence: None)
  Receive Date: 20070305
  Receipt Date: 20070219
  Transmission Date: 20070707
  Serious: Yes (Hospitalization, Other)
  Sender: FDA-Public Use
  Company Number: GB-ELI_LILLY_AND_COMPANY-GB200702004953

PATIENT
  Age: 50 Year
  Sex: Female

DRUGS (4)
  1. OLANZAPINE [Suspect]
  2. LAMOTRIGINE [Concomitant]
  3. ESCITALOPRAM [Concomitant]
  4. ZOPICLONE [Concomitant]

REACTIONS (4)
  - ELECTROCARDIOGRAM QT PROLONGED [None]
  - INTENTIONAL OVERDOSE [None]
  - PNEUMONIA [None]
  - SEROTONIN SYNDROME [None]
